FAERS Safety Report 4496679-9 (Version None)
Quarter: 2004Q4

REPORT INFORMATION
  Report Type: 
  Country: None (occurrence: None)
  Receive Date: 20041108
  Receipt Date: 20041108
  Transmission Date: 20050328
  Serious: Yes (Hospitalization)
  Sender: FDA-Public Use
  Company Number: None

PATIENT
  Age: 46 Year
  Sex: Male
  Weight: 84 kg

DRUGS (22)
  1. RAPAMUNE [Suspect]
     Indication: RENAL TRANSPLANT
     Dosage: SEE IMAGE
     Route: 048
     Dates: start: 20040530
  2. RAPAMUNE [Suspect]
     Indication: RENAL TRANSPLANT
     Dosage: SEE IMAGE
     Route: 048
     Dates: start: 20040616
  3. ... [Concomitant]
  4. MYFORTIC [Concomitant]
  5. NEORAL [Concomitant]
  6. PREDNISONE [Concomitant]
  7. AMLODIPINE BESYLATE [Concomitant]
  8. CLONIDINE HCL [Concomitant]
  9. COZAAR [Concomitant]
  10. FUROSEMIDE [Concomitant]
  11. LABETALOL [Concomitant]
  12. MINOXIDIL [Concomitant]
  13. BACTRIM DS [Concomitant]
  14. INSULIN-HUMALOG 75/25 [Concomitant]
  15. ESOMEPRAZOLE [Concomitant]
  16. LIPITOR [Concomitant]
  17. SYNTHROID [Concomitant]
  18. ISOSORBIDE MONONITRATE [Concomitant]
  19. ASPIRIN-CHILD SIZE [Concomitant]
  20. DILANTIN [Concomitant]
  21. FESO4 [Concomitant]
  22. PERCOCET [Concomitant]

REACTIONS (6)
  - MYALGIA [None]
  - MYOCARDIAL INFARCTION [None]
  - MYOSITIS [None]
  - NECK PAIN [None]
  - PAIN IN JAW [None]
  - PYREXIA [None]
